FAERS Safety Report 8610889-8 (Version None)
Quarter: 2012Q3

REPORT INFORMATION
  Report Type: 
  Country: None (occurrence: None)
  Receive Date: 20120822
  Receipt Date: 20120820
  Transmission Date: 20120928
  Serious: Yes (Life-Threatening, Hospitalization)
  Sender: FDA-Public Use
  Company Number: JP-SANOFI-AVENTIS-2012SA046865

PATIENT
  Age: 57 Year
  Sex: Male

DRUGS (10)
  1. LORATADINE [Suspect]
     Indication: SEASONAL ALLERGY
     Route: 048
  2. AMIODARONE HYDROCHLORIDE [Suspect]
     Route: 041
  3. AMIODARONE HYDROCHLORIDE [Suspect]
     Indication: CARDIAC FAILURE
     Route: 041
  4. CARPERITIDE [Concomitant]
     Route: 051
  5. LORATADINE [Suspect]
     Route: 048
  6. AMIODARONE HYDROCHLORIDE [Suspect]
     Indication: ATRIAL FIBRILLATION
     Route: 041
  7. FUROSEMIDE [Suspect]
     Route: 065
  8. AMIODARONE HYDROCHLORIDE [Suspect]
     Indication: VENTRICULAR FIBRILLATION
     Route: 041
  9. DILTIAZEM HCL [Suspect]
     Indication: ATRIAL FIBRILLATION
     Route: 048
  10. DOBUTREX [Concomitant]
     Route: 051

REACTIONS (5)
  - VENTRICULAR TACHYCARDIA [None]
  - LONG QT SYNDROME [None]
  - TORSADE DE POINTES [None]
  - SYNCOPE [None]
  - VENTRICULAR EXTRASYSTOLES [None]
